FAERS Safety Report 5066877-4 (Version None)
Quarter: 2006Q3

REPORT INFORMATION
  Report Type: 
  Country: None (occurrence: None)
  Receive Date: 20060726
  Receipt Date: 20060713
  Transmission Date: 20061208
  Serious: Yes (Other)
  Sender: FDA-Public Use
  Company Number: 2006083819

PATIENT
  Age: 74 Year
  Sex: Female
  Weight: 57 kg

DRUGS (11)
  1. SUTENT [Suspect]
     Indication: RENAL CELL CARCINOMA STAGE UNSPECIFIED
     Dosage: 25 MG (25 MG, 1 IN 1 D), ORAL
     Route: 048
     Dates: start: 20060417, end: 20060501
  2. SUTENT [Suspect]
     Indication: RENAL CELL CARCINOMA STAGE UNSPECIFIED
     Dosage: 25 MG (25 MG, 1 IN 1 D), ORAL
     Route: 048
     Dates: start: 20060612
  3. FUROSEMIDE [Concomitant]
  4. ENDOTELON (HERBAL EXTRACTS NOS, VITIS VINIFERA) [Concomitant]
  5. LANSOPRAZOLE [Concomitant]
  6. BROMAZEPAM (BROMAZEPAM) [Concomitant]
  7. ZOLEDRONIC ACID (ZOLEDRONIC ACID) [Concomitant]
  8. ACETAMINOPHEN [Concomitant]
  9. DICLOFENAC SODIUM [Concomitant]
  10. MACROGOL (MACROGOL) [Concomitant]
  11. LIDOCAINE/EPINEPHRINE (EPINEPHRINE, LIDOCAINE) [Concomitant]

REACTIONS (2)
  - BASAL CELL CARCINOMA [None]
  - SCAR [None]
